FAERS Safety Report 6691476-8 (Version None)
Quarter: 2010Q2

REPORT INFORMATION
  Report Type: 
  Country: None (occurrence: None)
  Receive Date: 20100422
  Receipt Date: 20100416
  Transmission Date: 20101027
  Serious: Yes (Life-Threatening, Hospitalization)
  Sender: FDA-Public Use
  Company Number: FR-SANOFI-AVENTIS-2010SA022119

PATIENT
  Age: 48 Year
  Sex: Female

DRUGS (3)
  1. CLAFORAN [Suspect]
     Route: 042
     Dates: start: 20100116, end: 20100117
  2. FLAMMAZINE [Suspect]
     Route: 003
     Dates: start: 20100113, end: 20100118
  3. AMIKACIN [Suspect]
     Route: 042
     Dates: start: 20100116, end: 20100117

REACTIONS (3)
  - ACUTE RESPIRATORY DISTRESS SYNDROME [None]
  - DERMATITIS EXFOLIATIVE [None]
  - SKIN OEDEMA [None]
